FAERS Safety Report 8031399-5 (Version None)
Quarter: 2011Q4

REPORT INFORMATION
  Report Type: 
  Country: None (occurrence: None)
  Receive Date: 20111201
  Receipt Date: 20110603
  Transmission Date: 20120403
  Serious: Yes (Hospitalization)
  Sender: FDA-Public Use
  Company Number: 284818USA

PATIENT
  Sex: Female

DRUGS (2)
  1. GLIMEPIRIDE [Suspect]
  2. METFORMIN HCL [Suspect]

REACTIONS (2)
  - RENAL DISORDER [None]
  - BLOOD GLUCOSE DECREASED [None]
